FAERS Safety Report 9555984 (Version 2)
Quarter: 2013Q4

REPORT INFORMATION
  Report Type: Report from Study
  Country: US (occurrence: US)
  Receive Date: 20130926
  Receipt Date: 20131007
  Transmission Date: 20140711
  Serious: Yes (Other)
  Sender: FDA-Public Use
  Company Number: US-ROCHE-1280355

PATIENT
  Sex: Female

DRUGS (2)
  1. RANIBIZUMAB [Suspect]
     Indication: MACULOPATHY
     Route: 050
     Dates: start: 2010
  2. RANIBIZUMAB [Suspect]
     Indication: EYE DISORDER

REACTIONS (4)
  - Visual acuity reduced [Recovering/Resolving]
  - Emotional distress [Recovering/Resolving]
  - Dysphonia [Recovering/Resolving]
  - Drug administered at inappropriate site [Unknown]
